FAERS Safety Report 5978632-9 (Version None)
Quarter: 2008Q4

REPORT INFORMATION
  Report Type: 
  Country: None (occurrence: None)
  Receive Date: 20081204
  Receipt Date: 20081126
  Transmission Date: 20090506
  Serious: Yes (Other)
  Sender: FDA-Public Use
  Company Number: US-BAYER-200839560NA

PATIENT
  Sex: Male

DRUGS (1)
  1. AVELOX [Suspect]
     Indication: GASTROINTESTINAL HAEMORRHAGE
     Dates: start: 20081105, end: 20081101

REACTIONS (1)
  - GASTROINTESTINAL HAEMORRHAGE [None]
